FAERS Safety Report 24122819 (Version 2)
Quarter: 2025Q2

REPORT INFORMATION
  Report Type: Spontaneous
  Country: US (occurrence: US)
  Receive Date: 20240723
  Receipt Date: 20250611
  Transmission Date: 20250717
  Serious: No
  Sender: SANOFI AVENTIS
  Company Number: US-SA-SAC20240718000095

PATIENT
  Age: 56 Year
  Sex: Female

DRUGS (7)
  1. DUPIXENT [Suspect]
     Active Substance: DUPILUMAB
     Indication: Asthma
     Dosage: 300 MG, Q3W
     Route: 058
     Dates: start: 20210121
  2. IBUPROFEN [Concomitant]
     Active Substance: IBUPROFEN
  3. IBUPROFEN [Concomitant]
     Active Substance: IBUPROFEN
  4. MONTELUKAST [Concomitant]
     Active Substance: MONTELUKAST
  5. VENTOLIN HFA [Concomitant]
     Active Substance: ALBUTEROL SULFATE
  6. ONDANSETRON [Concomitant]
     Active Substance: ONDANSETRON
  7. FLONASE [Concomitant]
     Active Substance: FLUTICASONE PROPIONATE

REACTIONS (4)
  - Inappropriate schedule of product administration [Unknown]
  - Heart rate increased [Unknown]
  - Impaired quality of life [Unknown]
  - Drug ineffective [Unknown]

NARRATIVE: CASE EVENT DATE: 20210121
